FAERS Safety Report 5395662-9 (Version None)
Quarter: 2007Q3

REPORT INFORMATION
  Report Type: 
  Country: None (occurrence: None)
  Receive Date: 20070724
  Receipt Date: 20070717
  Transmission Date: 20080115
  Serious: Yes (Other)
  Sender: FDA-Public Use
  Company Number: EG-ROXANE LABORATORIES, INC-2007-BP-17693RO

PATIENT
  Age: 34 Year
  Sex: Male

DRUGS (4)
  1. PREDNISONE [Suspect]
     Indication: IMMUNOSUPPRESSANT DRUG THERAPY
     Dosage: 0.25 MG/DAY
  2. BASILIXIMAB [Suspect]
     Indication: IMMUNOSUPPRESSANT DRUG THERAPY
     Dosage: 20 MG X 2 (DAYS 0 AND 4)
  3. SIROLIMUS [Suspect]
     Indication: IMMUNOSUPPRESSANT DRUG THERAPY
     Dosage: 10 MG/D (ADJUSTED TO 6-12 NG/ML LEVELS)
  4. MYCOPHENOLATE MOFETIL [Suspect]
     Indication: IMMUNOSUPPRESSANT DRUG THERAPY

REACTIONS (9)
  - BLOOD ALBUMIN DECREASED [None]
  - BLOOD CREATININE DECREASED [None]
  - BLOOD CREATININE INCREASED [None]
  - FOCAL GLOMERULOSCLEROSIS [None]
  - HAEMODIALYSIS [None]
  - HYPERTENSION [None]
  - OEDEMA PERIPHERAL [None]
  - PROTEINURIA [None]
  - RENAL IMPAIRMENT [None]
